FAERS Safety Report 8855156 (Version 1)
Quarter: 2012Q4

REPORT INFORMATION
  Report Type: 
  Country: US (occurrence: US)
  Receive Date: 20121023
  Receipt Date: 20121023
  Transmission Date: 20130627
  Serious: No
  Sender: FDA-Public Use
  Company Number: US-VERTEX PHARMACEUTICAL INC.-2012-022998

PATIENT
  Age: 28 Year
  Sex: Female
  Weight: 58 kg

DRUGS (6)
  1. VX-950 [Suspect]
     Indication: HEPATITIS C
     Dosage: 750 mg, tid
     Route: 048
  2. PEGASYS [Concomitant]
     Indication: HEPATITIS C
     Dosage: 180 ?g, UNK
  3. RIBAVIRIN [Concomitant]
     Indication: HEPATITIS C
     Dosage: 600 mg, UNK
     Route: 048
  4. IBUPROFEN [Concomitant]
     Dosage: 200 mg, UNK
     Route: 048
  5. EFFEXOR [Concomitant]
     Dosage: 25 mg, UNK
     Route: 048
  6. VITAMIN B COMPLEX [Concomitant]
     Route: 048

REACTIONS (2)
  - Rash [Recovered/Resolved]
  - Diarrhoea [Recovered/Resolved]
